FAERS Safety Report 14957394 (Version 3)
Quarter: 2018Q2

REPORT INFORMATION
  Report Type: Spontaneous
  Country: BG (occurrence: BG)
  Receive Date: 20180531
  Receipt Date: 20180605
  Transmission Date: 20180711
  Serious: Yes (Death, Life-Threatening, Other)
  Sender: FDA-Public Use
  Company Number: BG-PFIZER INC-2018220542

PATIENT
  Age: 29 Year
  Sex: Male

DRUGS (2)
  1. PROPOFOL. [Suspect]
     Active Substance: PROPOFOL
     Dosage: FIVE 20 ML AMPOULES, 10 MG/ML
     Route: 042
  2. LIDOCAINE. [Concomitant]
     Active Substance: LIDOCAINE
     Dosage: ONE 2 ML AMPOULE, 20 MG/ML
     Route: 042

REACTIONS (3)
  - Respiratory failure [Fatal]
  - Intentional overdose [Fatal]
  - Toxicity to various agents [Fatal]
